FAERS Safety Report 20756902 (Version 2)
Quarter: 2022Q2

REPORT INFORMATION
  Report Type: Spontaneous
  Country: IN (occurrence: IN)
  Receive Date: 20220427
  Receipt Date: 20220527
  Transmission Date: 20220720
  Serious: Yes (Other)
  Sender: FDA-Public Use
  Company Number: IN-PFIZER INC-2019487574

PATIENT
  Age: 50 Year
  Sex: Female
  Weight: 86 kg

DRUGS (7)
  1. PALBOCICLIB [Suspect]
     Active Substance: PALBOCICLIB
     Indication: Breast cancer metastatic
     Dosage: 125 MG, CYCLIC (1X/DAY D1-21 EVERY 28 DAYS)
     Route: 048
     Dates: start: 20190219
  2. LETALL [Concomitant]
     Dosage: 2.5 MG, 1X/DAY
  3. CALCIUM CARBONATE\CHOLECALCIFEROL [Concomitant]
     Active Substance: CALCIUM CARBONATE\CHOLECALCIFEROL
     Dosage: 1X/DAY
  4. ZOLEDRONIC ACID [Concomitant]
     Active Substance: ZOLEDRONIC ACID
     Dosage: 4 MG
  5. CHLORHEXIDINE [Concomitant]
     Active Substance: CHLORHEXIDINE
     Dosage: UNK, 2X/DAY
  6. METOCLOPRAMIDE HYDROCHLORIDE [Concomitant]
     Active Substance: METOCLOPRAMIDE HYDROCHLORIDE
     Dosage: UNK, AS NEEDED (MAX 3 TABS)
  7. ULTRACET [Concomitant]
     Active Substance: ACETAMINOPHEN\TRAMADOL HYDROCHLORIDE
     Dosage: UNK, AS NEEDED (MAX 3 TABS)

REACTIONS (16)
  - Body mass index increased [Unknown]
  - Pain [Unknown]
  - Insomnia [Unknown]
  - Neoplasm progression [Unknown]
  - Mixed anxiety and depressive disorder [Unknown]
  - Haemoglobin decreased [Unknown]
  - Platelet count decreased [Unknown]
  - Blood pressure increased [Unknown]
  - Chest pain [Unknown]
  - Dyspnoea exertional [Unknown]
  - Bone pain [Unknown]
  - Gait disturbance [Unknown]
  - Pain in extremity [Unknown]
  - Lymphadenopathy [Unknown]
  - Red blood cell count decreased [Unknown]
  - White blood cell count decreased [Unknown]

NARRATIVE: CASE EVENT DATE: 20190101
